FAERS Safety Report 5883689-X (Version None)
Quarter: 2008Q3

REPORT INFORMATION
  Report Type: 
  Country: None (occurrence: None)
  Receive Date: 20080912
  Receipt Date: 20080912
  Transmission Date: 20090109
  Serious: Yes (Hospitalization, Other)
  Sender: FDA-Public Use
  Company Number: None

PATIENT
  Age: 51 Year
  Sex: Female
  Weight: 108.8633 kg

DRUGS (1)
  1. CRESTOR [Suspect]
     Indication: BLOOD CHOLESTEROL INCREASED
     Dosage: 20MG DAY PO
     Route: 048
     Dates: start: 20031104, end: 20080330

REACTIONS (6)
  - ABASIA [None]
  - CONVERSION DISORDER [None]
  - DYSPHEMIA [None]
  - LOSS OF CONSCIOUSNESS [None]
  - STRESS [None]
  - TREMOR [None]
